FAERS Safety Report 17824205 (Version 1)
Quarter: 2020Q2

REPORT INFORMATION
  Report Type: Spontaneous
  Country: US (occurrence: US)
  Receive Date: 20200526
  Receipt Date: 20200526
  Transmission Date: 20200714
  Serious: No
  Sender: FDA-Public Use
  Company Number: None

PATIENT
  Age: 67 Year
  Sex: Female
  Weight: 75.5 kg

DRUGS (16)
  1. AMLODIPINE [Concomitant]
     Active Substance: AMLODIPINE BESYLATE
     Dates: start: 20200518, end: 20200525
  2. GEMFIBROZIL. [Concomitant]
     Active Substance: GEMFIBROZIL
     Dates: start: 20200518, end: 20200526
  3. D5/NS [Concomitant]
     Dates: start: 20200520, end: 20200524
  4. MIDAZOLAM. [Concomitant]
     Active Substance: MIDAZOLAM
     Dates: start: 20200522, end: 20200526
  5. PANTOPRAZOLE [Concomitant]
     Active Substance: PANTOPRAZOLE
     Dates: start: 20200522, end: 20200526
  6. INSULIN ASPART [Concomitant]
     Active Substance: INSULIN ASPART
     Dates: start: 20200522, end: 20200525
  7. CEFTRIAXONE. [Concomitant]
     Active Substance: CEFTRIAXONE
     Dates: start: 20200523, end: 20200525
  8. SODIUM PHOSPHATE [Concomitant]
     Active Substance: SODIUM PHOSPHATE
     Dates: start: 20200523, end: 20200523
  9. HEPARIN [Concomitant]
     Active Substance: HEPARIN SODIUM
     Dates: start: 20200523, end: 20200525
  10. ZINC SULFATE. [Concomitant]
     Active Substance: ZINC SULFATE
     Dates: start: 20200520, end: 20200526
  11. AZITHROMYCIN ANHYDROUS. [Concomitant]
     Active Substance: AZITHROMYCIN ANHYDROUS
     Dates: start: 20200522, end: 20200524
  12. ASCORBIC ACID. [Concomitant]
     Active Substance: ASCORBIC ACID
     Dates: start: 20200520, end: 20200526
  13. BUMETANIDE. [Concomitant]
     Active Substance: BUMETANIDE
     Dates: start: 20200523, end: 20200525
  14. REMDESIVIR. [Suspect]
     Active Substance: REMDESIVIR
     Indication: COVID-19
     Dates: start: 20200519, end: 20200523
  15. FENTANYL. [Concomitant]
     Active Substance: FENTANYL
     Dates: start: 20200521, end: 20200526
  16. NOREPINEPHRINE. [Concomitant]
     Active Substance: NOREPINEPHRINE
     Dates: start: 20200522, end: 20200525

REACTIONS (1)
  - Procedural hypotension [None]

NARRATIVE: CASE EVENT DATE: 20200522
